FAERS Safety Report 10570726 (Version 1)
Quarter: 2014Q4

REPORT INFORMATION
  Report Type: Spontaneous
  Country: US (occurrence: None)
  Receive Date: 20141106
  Receipt Date: 20141106
  Transmission Date: 20150529
  Serious: No
  Sender: FDA-Public Use
  Company Number: None

PATIENT
  Age: 55 Year
  Sex: Female

DRUGS (3)
  1. ELOXATIN [Suspect]
     Active Substance: OXALIPLATIN
  2. 5-FLUOROURACIL (5-FU) [Suspect]
     Active Substance: FLUOROURACIL
  3. LEUCOVORIN CALCIUM. [Suspect]
     Active Substance: LEUCOVORIN CALCIUM

REACTIONS (3)
  - Neuropathy peripheral [None]
  - Thrombosis [None]
  - Procedural haemorrhage [None]

NARRATIVE: CASE EVENT DATE: 20140904
